FAERS Safety Report 13623572 (Version 1)
Quarter: 2017Q2

REPORT INFORMATION
  Report Type: Spontaneous
  Country: US (occurrence: US)
  Receive Date: 20170608
  Receipt Date: 20170608
  Transmission Date: 20170830
  Serious: No
  Sender: FDA-Public Use
  Company Number: US-B.I. PHARMACEUTICALS,INC./RIDGEFIELD-2017-BI-031005

PATIENT
  Age: 65 Year
  Sex: Female

DRUGS (11)
  1. OMEPRAZOLE. [Concomitant]
     Active Substance: OMEPRAZOLE
     Indication: GASTROOESOPHAGEAL REFLUX DISEASE
     Dosage: 2 DAILY;  FORM STRENGTH: 20MG; FORMULATION: CAPSULE
     Route: 048
  2. PRAVASTATIN. [Concomitant]
     Active Substance: PRAVASTATIN
     Indication: BLOOD CHOLESTEROL ABNORMAL
     Dosage: DAILY;  FORM STRENGTH: 40MG; FORMULATION: TABLET
     Route: 048
  3. BACLOFEN. [Concomitant]
     Active Substance: BACLOFEN
     Indication: MUSCLE SPASMS
     Dosage: 3 TIMES A DAY;  FORM STRENGTH: 10MG; FORMULATION: TABLET
     Route: 048
  4. FLECAINIDE [Concomitant]
     Active Substance: FLECAINIDE
     Indication: ATRIAL FIBRILLATION
     Dosage: TWICE A DAY;  FORM STRENGTH: 15MG; FORMULATION: TABLET
     Route: 048
  5. AMANTADINE. [Concomitant]
     Active Substance: AMANTADINE HYDROCHLORIDE
     Indication: MULTIPLE SCLEROSIS
     Dosage: UP TO 3 TIMES PER DAY;  FORM STRENGTH: 100MG; FORMULATION: CAPSULE
     Route: 048
  6. ZOLPIDEM [Concomitant]
     Active Substance: ZOLPIDEM\ZOLPIDEM TARTRATE
     Indication: INSOMNIA
     Dosage: BED TIME;  FORM STRENGTH: 10MG; FORMULATION: TABLET
     Route: 048
  7. AMINOPYRIDINE-4 [Concomitant]
     Indication: MULTIPLE SCLEROSIS
     Dosage: 2 THREE TIMES A DAY;  FORM STRENGTH: 5MG; FORMULATION: CAPSULE
     Route: 048
  8. PRADAXA [Suspect]
     Active Substance: DABIGATRAN ETEXILATE MESYLATE
     Indication: ATRIAL FIBRILLATION
     Dosage: TWICE A DAY;  FORM STRENGTH: 150 MG; FORMULATION: CAPSULE? ADMINISTRATION CORRECT? YES ?ACTION(S) TA
     Route: 048
     Dates: start: 201702
  9. LISINOPRIL. [Concomitant]
     Active Substance: LISINOPRIL
     Indication: HYPERTENSION
     Dosage: DAILY;  FORM STRENGTH: 10MG; FORMULATION: TABLET
     Route: 048
  10. METOPROLOL. [Concomitant]
     Active Substance: METOPROLOL
     Indication: ATRIAL FIBRILLATION
     Dosage: TWICE A DAY;  FORM STRENGTH: 25MG; FORMULATION: TABLET
     Route: 048
  11. LOW-DOSE NALTREXONE [Concomitant]
     Indication: MULTIPLE SCLEROSIS
     Dosage: 1 DAILY;  FORM STRENGTH: 4.5MG; FORMULATION: CAPSULE
     Route: 048

REACTIONS (2)
  - Dyspepsia [Not Recovered/Not Resolved]
  - Cough [Not Recovered/Not Resolved]

NARRATIVE: CASE EVENT DATE: 201703
